FAERS Safety Report 5267044-1 (Version None)
Quarter: 2007Q1

REPORT INFORMATION
  Report Type: 
  Country: None (occurrence: None)
  Receive Date: 20070316
  Receipt Date: 20070305
  Transmission Date: 20070707
  Serious: Yes (Other)
  Sender: FDA-Public Use
  Company Number: US-JNJFOC-20070300995

PATIENT
  Age: 57 Year
  Sex: Male

DRUGS (8)
  1. METHYLPHENIDATE HCL [Suspect]
     Indication: DEPRESSION
     Route: 048
  2. METHYLPHENIDATE HCL [Suspect]
     Indication: DISTURBANCE IN ATTENTION
     Route: 048
  3. CYCLOSPORINE [Concomitant]
  4. VENLAFAXINE HCL [Concomitant]
  5. OMEPRAZOLE [Concomitant]
  6. HYDROCHLOROTHIAZIDE [Concomitant]
  7. FOSINOPRIL SODIUM [Concomitant]
  8. MULTI-VITAMIN [Concomitant]

REACTIONS (1)
  - AUTOIMMUNE HEPATITIS [None]
